FAERS Safety Report 22096030 (Version 2)
Quarter: 2023Q2

REPORT INFORMATION
  Report Type: Spontaneous
  Country: US (occurrence: US)
  Receive Date: 20230315
  Receipt Date: 20230413
  Transmission Date: 20230721
  Serious: No
  Sender: FDA-Public Use
  Company Number: US-JNJFOC-20230323883

PATIENT
  Sex: Male

DRUGS (3)
  1. RISPERDAL [Suspect]
     Active Substance: RISPERIDONE
     Indication: Agitation
     Route: 048
  2. RISPERDAL [Suspect]
     Active Substance: RISPERIDONE
     Indication: Autism spectrum disorder
  3. RISPERDAL [Suspect]
     Active Substance: RISPERIDONE
     Indication: Aggression

REACTIONS (4)
  - Gynaecomastia [Unknown]
  - Somnolence [Unknown]
  - Blood prolactin increased [Unknown]
  - Drug ineffective [Unknown]
